FAERS Safety Report 7632786-7 (Version None)
Quarter: 2011Q3

REPORT INFORMATION
  Report Type: 
  Country: None (occurrence: None)
  Receive Date: 20110725
  Receipt Date: 20110719
  Transmission Date: 20111222
  Serious: Yes (Hospitalization, Disabling, Other)
  Sender: FDA-Public Use
  Company Number: DE-SANOFI-AVENTIS-2011SA001684

PATIENT
  Age: 66 Year
  Sex: Male
  Weight: 75 kg

DRUGS (8)
  1. AMIODARONE HCL [Suspect]
     Indication: ATRIAL FIBRILLATION
     Route: 065
     Dates: start: 20100101, end: 20100101
  2. PHENPROCOUMON [Concomitant]
     Route: 065
  3. MULTAQ [Suspect]
     Indication: ATRIAL FIBRILLATION
     Route: 048
     Dates: start: 20100323, end: 20100923
  4. LISINOPRIL [Concomitant]
     Route: 048
  5. BISOPROLOL FUMARATE [Concomitant]
     Indication: ATRIAL FIBRILLATION
     Route: 048
  6. MARCUMAR [Concomitant]
     Route: 048
  7. FELODIPINE [Concomitant]
     Route: 048
  8. ZOCOR [Concomitant]
     Indication: HYPERCHOLESTEROLAEMIA
     Route: 048

REACTIONS (5)
  - RASH [None]
  - PRURITUS GENERALISED [None]
  - LUNG DISORDER [None]
  - DRUG ERUPTION [None]
  - SKIN FISSURES [None]
